FAERS Safety Report 8514521 (Version 4)
Quarter: 2012Q4

REPORT INFORMATION
  Report Type: 
  Country: JP (occurrence: JP)
  Receive Date: 20120416
  Receipt Date: 20120911
  Transmission Date: 20130627
  Serious: Yes (Hospitalization)
  Sender: FDA-Public Use
  Company Number: JP-NOVOPROD-349089

PATIENT
  Age: 78 Year
  Sex: Female
  Weight: 52 kg

DRUGS (3)
  1. VICTOZA HIKACHU INJECTION [Suspect]
     Indication: TYPE 2 DIABETES MELLITUS
     Dosage: 0.3 mg, qd
     Route: 058
     Dates: start: 20110221, end: 20120314
  2. MEVALOTIN [Concomitant]
     Dosage: 10 mg, qd
     Route: 048
     Dates: start: 20090713
  3. NORVASC [Concomitant]
     Dosage: 2.5 mg, qd
     Route: 048
     Dates: start: 20080903, end: 20120305

REACTIONS (1)
  - Adenocarcinoma gastric [Recovered/Resolved]
